FAERS Safety Report 24971243 (Version 1)
Quarter: 2025Q1

REPORT INFORMATION
  Report Type: Spontaneous
  Country: US (occurrence: US)
  Receive Date: 20250214
  Receipt Date: 20250214
  Transmission Date: 20250409
  Serious: Yes (Other)
  Sender: TEVA
  Company Number: US-TEVA-VS-3295324

PATIENT
  Age: 55 Year
  Sex: Female

DRUGS (1)
  1. AMPHETAMINE SULFATE\DEXTROAMPHETAMINE [Suspect]
     Active Substance: AMPHETAMINE SULFATE\DEXTROAMPHETAMINE
     Indication: Product used for unknown indication
     Route: 048
     Dates: start: 2023, end: 202310

REACTIONS (4)
  - Coeliac disease [Unknown]
  - Gluten sensitivity [Unknown]
  - Milk allergy [Unknown]
  - Pharyngeal swelling [Unknown]
